FAERS Safety Report 19062151 (Version 3)
Quarter: 2021Q2

REPORT INFORMATION
  Report Type: Spontaneous
  Country: US (occurrence: US)
  Receive Date: 20210326
  Receipt Date: 20210602
  Transmission Date: 20210717
  Serious: Yes (Life-Threatening, Other)
  Sender: FDA-Public Use
  Company Number: US-PFIZER INC-2021331699

PATIENT
  Age: 13 Year
  Sex: Male

DRUGS (6)
  1. SIROLIMUS. [Suspect]
     Active Substance: SIROLIMUS
     Indication: IMMUNOSUPPRESSION
     Dosage: UNK
  2. TACROLIMUS. [Suspect]
     Active Substance: TACROLIMUS
     Indication: IMMUNOSUPPRESSION
     Dosage: UNK
  3. PREDNISONE. [Concomitant]
     Active Substance: PREDNISONE
     Indication: POST TRANSPLANT LYMPHOPROLIFERATIVE DISORDER
     Dosage: UNK
  4. SIROLIMUS. [Suspect]
     Active Substance: SIROLIMUS
     Indication: POST TRANSPLANT LYMPHOPROLIFERATIVE DISORDER
  5. TACROLIMUS. [Suspect]
     Active Substance: TACROLIMUS
     Indication: POST TRANSPLANT LYMPHOPROLIFERATIVE DISORDER
  6. PREDNISONE. [Concomitant]
     Active Substance: PREDNISONE
     Indication: IMMUNOSUPPRESSION

REACTIONS (1)
  - Cutaneous T-cell lymphoma [Recovered/Resolved]
